FAERS Safety Report 11217591 (Version 3)
Quarter: 2015Q3

REPORT INFORMATION
  Report Type: Spontaneous
  Country: BR (occurrence: BR)
  Receive Date: 20150625
  Receipt Date: 20150824
  Transmission Date: 20151125
  Serious: Yes (Hospitalization)
  Sender: FDA-Public Use
  Company Number: PHHY2015BR075203

PATIENT
  Age: 66 Year
  Sex: Female
  Weight: 52 kg

DRUGS (1)
  1. FORASEQ [Suspect]
     Active Substance: BUDESONIDE\FORMOTEROL FUMARATE
     Indication: ASTHMA
     Dosage: 1 DF, Q12H
     Route: 055

REACTIONS (23)
  - Asthmatic crisis [Recovering/Resolving]
  - Ventricular tachycardia [Not Recovered/Not Resolved]
  - Pleural disorder [Unknown]
  - Gait disturbance [Unknown]
  - Malaise [Unknown]
  - Cardiac disorder [Not Recovered/Not Resolved]
  - White blood cell count increased [Unknown]
  - Sinus arrhythmia [Not Recovered/Not Resolved]
  - Low density lipoprotein increased [Unknown]
  - Nodule [Unknown]
  - Asthenia [Unknown]
  - Weight decreased [Unknown]
  - Red blood cell count decreased [Unknown]
  - General physical condition abnormal [Unknown]
  - Fatigue [Unknown]
  - Blood triglycerides increased [Unknown]
  - Blood glucose increased [Unknown]
  - Osteoarthritis [Not Recovered/Not Resolved]
  - Depressed mood [Unknown]
  - Vitamin B2 decreased [Unknown]
  - Blood cholesterol increased [Unknown]
  - Dyspnoea [Recovering/Resolving]
  - Depression [Recovering/Resolving]

NARRATIVE: CASE EVENT DATE: 201411
